FAERS Safety Report 8113452-0 (Version None)
Quarter: 2012Q1

REPORT INFORMATION
  Report Type: 
  Country: None (occurrence: None)
  Receive Date: 20120203
  Receipt Date: 20120123
  Transmission Date: 20120608
  Serious: Yes (Other)
  Sender: FDA-Public Use
  Company Number: ES-JNJFOC-20120110333

PATIENT
  Age: 17 Year
  Sex: Female
  Weight: 66 kg

DRUGS (1)
  1. REMICADE [Suspect]
     Indication: COLITIS ULCERATIVE
     Route: 042
     Dates: start: 20100201, end: 20110622

REACTIONS (5)
  - ARTHRITIS [None]
  - SKIN LESION [None]
  - PYREXIA [None]
  - SEROSITIS [None]
  - LUPUS-LIKE SYNDROME [None]
